FAERS Safety Report 7584792-9 (Version None)
Quarter: 2011Q2

REPORT INFORMATION
  Report Type: 
  Country: None (occurrence: None)
  Receive Date: 20110630
  Receipt Date: 20110617
  Transmission Date: 20111010
  Serious: Yes (Hospitalization)
  Sender: FDA-Public Use
  Company Number: PHHY2011AU51860

PATIENT
  Sex: Male

DRUGS (2)
  1. EXELON [Suspect]
     Indication: DEMENTIA
     Dosage: 9.5/24 HR MG
     Route: 062
     Dates: start: 20091001
  2. LERCANIDIPINE [Concomitant]

REACTIONS (6)
  - HICCUPS [None]
  - SNEEZING [None]
  - GASTROOESOPHAGEAL REFLUX DISEASE [None]
  - ABDOMINAL PAIN UPPER [None]
  - OESOPHAGEAL OBSTRUCTION [None]
  - COUGH [None]
